FAERS Safety Report 8109422-9 (Version None)
Quarter: 2012Q1

REPORT INFORMATION
  Report Type: 
  Country: None (occurrence: None)
  Receive Date: 20120202
  Receipt Date: 20120110
  Transmission Date: 20120608
  Serious: No
  Sender: FDA-Public Use
  Company Number: US-AMGEN-USASP2012001799

PATIENT
  Sex: Female

DRUGS (3)
  1. ENBREL [Suspect]
     Indication: RHEUMATOID ARTHRITIS
     Dosage: UNK
     Dates: start: 20110228, end: 20110301
  2. ORENCIA [Concomitant]
     Dosage: UNK
  3. CIMZIA [Concomitant]
     Dosage: UNK

REACTIONS (2)
  - INJECTION SITE SWELLING [None]
  - HYPERSENSITIVITY [None]
